FAERS Safety Report 25022422 (Version 2)
Quarter: 2025Q3

REPORT INFORMATION
  Report Type: Report from Study
  Country: US (occurrence: US)
  Receive Date: 20250228
  Receipt Date: 20250809
  Transmission Date: 20251021
  Serious: Yes (Hospitalization, Other)
  Sender: ALEXION PHARMACEUTICALS
  Company Number: US-AstraZeneca-CH-00812017A

PATIENT
  Age: 69 Year
  Sex: Male
  Weight: 175 kg

DRUGS (10)
  1. ACALABRUTINIB [Suspect]
     Active Substance: ACALABRUTINIB
     Indication: Chronic lymphocytic leukaemia
     Dosage: 100 MILLIGRAM, BID
     Dates: start: 20230612
  2. ALLOPURINOL [Concomitant]
     Active Substance: ALLOPURINOL
  3. Yuhan amoxicillin clavulanate [Concomitant]
  4. CEFADROXIL [Concomitant]
     Active Substance: CEFADROXIL
  5. CEPHALEXIN [Concomitant]
     Active Substance: CEPHALEXIN
  6. COLACE [Concomitant]
     Active Substance: DOCUSATE SODIUM
  7. FUROSEMIDE [Concomitant]
     Active Substance: FUROSEMIDE
  8. METAMUCIL [Concomitant]
     Active Substance: PLANTAGO SEED
  9. VITAMIN D3 [Concomitant]
     Active Substance: CHOLECALCIFEROL
  10. WHEAT GERM OIL [Concomitant]
     Active Substance: WHEAT GERM OIL

REACTIONS (1)
  - Acute kidney injury [Unknown]
